FAERS Safety Report 5122474-3 (Version None)
Quarter: 2006Q4

REPORT INFORMATION
  Report Type: 
  Country: None (occurrence: None)
  Receive Date: 20061004
  Receipt Date: 20060928
  Transmission Date: 20070319
  Serious: Yes (Hospitalization)
  Sender: FDA-Public Use
  Company Number: TAP2006Q01641

PATIENT
  Age: 10 Year
  Sex: Female
  Weight: 79.4 kg

DRUGS (1)
  1. LUPRON DEPOT [Suspect]
     Indication: PRECOCIOUS PUBERTY
     Dosage: 15 MG, 1 IN 28 D, INTRAMUSCULAR
     Route: 030
     Dates: start: 20040901

REACTIONS (1)
  - EPIPHYSIOLYSIS [None]
